FAERS Safety Report 4968765-8 (Version None)
Quarter: 2006Q2

REPORT INFORMATION
  Report Type: 
  Country: None (occurrence: None)
  Receive Date: 20060405
  Receipt Date: 20060322
  Transmission Date: 20061013
  Serious: Yes (Death, Hospitalization)
  Sender: FDA-Public Use
  Company Number: 2006RR-01847

PATIENT
  Age: 26 Year
  Sex: Female

DRUGS (1)
  1. IBUPROFEN [Suspect]
     Dosage: 105 G

REACTIONS (6)
  - DEPRESSED LEVEL OF CONSCIOUSNESS [None]
  - DRUG TOXICITY [None]
  - HAEMODIALYSIS [None]
  - HAEMODYNAMIC INSTABILITY [None]
  - INTENTIONAL OVERDOSE [None]
  - METABOLIC ACIDOSIS [None]
